FAERS Safety Report 7065934-0 (Version None)
Quarter: 2010Q4

REPORT INFORMATION
  Report Type: 
  Country: None (occurrence: None)
  Receive Date: 20101027
  Receipt Date: 20101004
  Transmission Date: 20110411
  Serious: Yes (Hospitalization)
  Sender: FDA-Public Use
  Company Number: US-AMGEN-KDL443657

PATIENT

DRUGS (6)
  1. PROCRIT [Suspect]
     Indication: ANAEMIA
     Dosage: 10000 IU, QWK
     Route: 058
     Dates: start: 20060101
  2. SPIRONOLACTONE [Concomitant]
     Dosage: 100 MG, QD
     Route: 048
     Dates: start: 20040601
  3. METOPROLOL [Concomitant]
     Dosage: 50 MG, QD
     Route: 048
     Dates: start: 20040601
  4. OMEPRAZOLE [Concomitant]
     Dosage: 20 MG, QD
     Route: 048
  5. INSULIN GLARGINE [Concomitant]
     Dosage: 100 IU, QD
     Dates: start: 20040601
  6. INSULIN ASPART [Concomitant]
     Dosage: 100 IU, TID
     Dates: start: 20040601

REACTIONS (2)
  - CONFUSIONAL STATE [None]
  - OEDEMA PERIPHERAL [None]
